FAERS Safety Report 7461962-1 (Version None)
Quarter: 2011Q2

REPORT INFORMATION
  Report Type: 
  Country: None (occurrence: None)
  Receive Date: 20110506
  Receipt Date: 20110420
  Transmission Date: 20111010
  Serious: Yes (Hospitalization, Other)
  Sender: FDA-Public Use
  Company Number: CL-BAYER-2011-037036

PATIENT
  Age: 65 Year
  Sex: Female
  Weight: 51.2 kg

DRUGS (4)
  1. ACETYLSALICYLIC ACID SRT [Suspect]
     Indication: ACUTE CORONARY SYNDROME
     Route: 048
  2. RIVAROXABAN [Interacting]
     Dosage: DOSAGE FORM: TABLET
     Route: 048
  3. RIVAROXABAN [Interacting]
     Indication: ACUTE CORONARY SYNDROME
     Dosage: DOSAGE FORM: TABLET
     Route: 048
     Dates: start: 20110111
  4. CLOPIDOGREL [Interacting]
     Indication: ACUTE CORONARY SYNDROME
     Route: 048

REACTIONS (1)
  - VASCULAR PSEUDOANEURYSM [None]
